FAERS Safety Report 8075302-0 (Version None)
Quarter: 2012Q1

REPORT INFORMATION
  Report Type: 
  Country: None (occurrence: None)
  Receive Date: 20120127
  Receipt Date: 20120116
  Transmission Date: 20120608
  Serious: Yes (Hospitalization)
  Sender: FDA-Public Use
  Company Number: FR-ELI_LILLY_AND_COMPANY-FR201108008725

PATIENT
  Age: 64 Year
  Sex: Female
  Weight: 50 kg

DRUGS (3)
  1. LEVOTHYROXINE SODIUM [Concomitant]
     Indication: HYPOTHYROIDISM
     Dosage: 75 UG, QD
     Route: 048
     Dates: start: 20100518
  2. FORTEO [Suspect]
     Indication: OSTEOPOROSIS
     Dosage: 20 UG, QD
     Route: 058
     Dates: start: 20110504
  3. OXAZEPAM [Concomitant]
     Dosage: 10 MG, BID

REACTIONS (6)
  - NAUSEA [None]
  - BLOOD PARATHYROID HORMONE DECREASED [None]
  - URINE ABNORMALITY [None]
  - MUSCLE SPASMS [None]
  - BONE PAIN [None]
  - DIZZINESS [None]
